FAERS Safety Report 13906061 (Version 1)
Quarter: 2017Q3

REPORT INFORMATION
  Report Type: Spontaneous
  Country: US (occurrence: None)
  Receive Date: 20170822
  Receipt Date: 20170822
  Transmission Date: 20171127
  Serious: Yes (Hospitalization)
  Sender: FDA-Public Use
  Company Number: None

PATIENT
  Age: 56 Year
  Sex: Female

DRUGS (7)
  1. ALLOPURINOL. [Concomitant]
     Active Substance: ALLOPURINOL
  2. CLARITIN [Concomitant]
     Active Substance: LORATADINE
  3. AMLODIPINE [Concomitant]
     Active Substance: AMLODIPINE BESYLATE
  4. BISOPROL [Concomitant]
  5. NEULASTA [Suspect]
     Active Substance: PEGFILGRASTIM
     Indication: LIP AND/OR ORAL CAVITY CANCER
     Dosage: 6MG Q 3 W SC
     Route: 058
     Dates: start: 20170727
  6. ATORVASTATIN [Concomitant]
     Active Substance: ATORVASTATIN
  7. DICYCLOMINE [Concomitant]
     Active Substance: DICYCLOMINE HYDROCHLORIDE

REACTIONS (1)
  - Fluid retention [None]
